FAERS Safety Report 9207550 (Version 3)
Quarter: 2014Q2

REPORT INFORMATION
  Report Type: Spontaneous
  Country: US (occurrence: US)
  Receive Date: 20130403
  Receipt Date: 20140515
  Transmission Date: 20141212
  Serious: Yes (Other)
  Sender: FDA-Public Use
  Company Number: US-BAYER-2013-039949

PATIENT
  Age: 26 Year
  Sex: Female

DRUGS (9)
  1. YASMIN [Suspect]
     Dosage: UNK
     Route: 048
     Dates: start: 200706
  2. OCELLA [Suspect]
     Dosage: UNK
     Route: 048
     Dates: start: 200706
  3. OXYCODONE/APAP [Concomitant]
     Dosage: 5/325 MG, 1 TO 2 EVERY 4 TO 6 HOURS AS NEEDED
     Route: 048
  4. DOC-Q-LACE [Concomitant]
     Dosage: 100 MG, WITH FOOD TWICE DAILY
     Route: 048
  5. FERROUS SULFATE [Concomitant]
     Dosage: 325 MG TWICE DAILY
     Route: 048
  6. METRONIDAZOLE [Concomitant]
     Dosage: 500 MG TWICE DAILY FOR 7 DAYS
     Route: 048
  7. VENTOLIN [Concomitant]
     Dosage: 1 TO 2 PUFFS EVERY 4 TO 6 HOURS, AS NEEDED
  8. SINGULAIR [Concomitant]
     Dosage: 10 MG EVERY EVENING
     Route: 048
  9. CIPROFLOXACIN [Concomitant]
     Dosage: 500 MG TWICE DAILY, 28 DISPENSED

REACTIONS (5)
  - Cholelithiasis [None]
  - Cholecystitis [None]
  - Injury [None]
  - Pain [None]
  - Pain [None]
